FAERS Safety Report 20450523 (Version 2)
Quarter: 2022Q2

REPORT INFORMATION
  Report Type: Spontaneous
  Country: JP (occurrence: JP)
  Receive Date: 20220209
  Receipt Date: 20220504
  Transmission Date: 20220721
  Serious: Yes (Death, Other)
  Sender: FDA-Public Use
  Company Number: JP-JAZZ-2022-JP-002404

PATIENT
  Age: 49 Year
  Sex: Male

DRUGS (1)
  1. DEFITELIO [Suspect]
     Active Substance: DEFIBROTIDE SODIUM
     Indication: Venoocclusive liver disease
     Dosage: 25 MILLIGRAM
     Route: 042
     Dates: start: 20211124, end: 20211224

REACTIONS (3)
  - Cerebral infarction [Fatal]
  - Thrombotic microangiopathy [Fatal]
  - Disease progression [Fatal]

NARRATIVE: CASE EVENT DATE: 20220125
